FAERS Safety Report 20131253 (Version 9)
Quarter: 2025Q2

REPORT INFORMATION
  Report Type: Report from Study
  Country: US (occurrence: US)
  Receive Date: 20211130
  Receipt Date: 20250510
  Transmission Date: 20250716
  Serious: Yes (Other)
  Sender: TAKEDA
  Company Number: US-TAKEDA-US202009286

PATIENT
  Sex: Female

DRUGS (2)
  1. HUMAN IMMUNOGLOBULIN G [Suspect]
     Active Substance: HUMAN IMMUNOGLOBULIN G
     Indication: Primary immunodeficiency syndrome
  2. HUMAN IMMUNOGLOBULIN G [Suspect]
     Active Substance: HUMAN IMMUNOGLOBULIN G
     Indication: Immunodeficiency common variable
     Dosage: UNK UNK, Q4WEEKS

REACTIONS (13)
  - Guillain-Barre syndrome [Unknown]
  - Colonoscopy abnormal [Unknown]
  - Cardiomegaly [Unknown]
  - Respiratory tract infection viral [Unknown]
  - Poor venous access [Unknown]
  - COVID-19 [Unknown]
  - Respiratory disorder [Recovered/Resolved]
  - Rotator cuff syndrome [Unknown]
  - Palpitations [Unknown]
  - Vertigo [Unknown]
  - Asthenia [Unknown]
  - Cough [Unknown]
  - Fatigue [Unknown]
